FAERS Safety Report 5090836-9 (Version None)
Quarter: 2006Q3

REPORT INFORMATION
  Report Type: 
  Country: None (occurrence: None)
  Receive Date: 20060823
  Receipt Date: 20060817
  Transmission Date: 20061208
  Serious: Yes (Hospitalization)
  Sender: FDA-Public Use
  Company Number: FRWYE721517AUG06

PATIENT
  Age: 29 Year
  Sex: Female

DRUGS (5)
  1. EFFEXOR XR [Suspect]
     Indication: BIPOLAR I DISORDER
     Dosage: 37.5 MG 1X PER 1 DAY ORAL
     Route: 048
     Dates: start: 20050914
  2. DEPAKOTE [Suspect]
     Indication: BIPOLAR I DISORDER
     Dosage: 1500MG THEN 500 MG DAILY ORAL
     Route: 048
     Dates: start: 20050914, end: 20060221
  3. RISPERDAL [Suspect]
     Indication: BIPOLAR I DISORDER
     Dosage: 2 MG 1X PER 1 DAY ORAL
     Route: 048
     Dates: start: 20050901, end: 20060213
  4. XANAX [Concomitant]
  5. DAFLON (DIOSMIN) [Concomitant]

REACTIONS (1)
  - CYTOLYTIC HEPATITIS [None]
